FAERS Safety Report 6060822-0 (Version None)
Quarter: 2009Q1

REPORT INFORMATION
  Report Type: 
  Country: None (occurrence: None)
  Receive Date: 20090202
  Receipt Date: 20090128
  Transmission Date: 20090719
  Serious: Yes (Other)
  Sender: FDA-Public Use
  Company Number: PHBS2009IT00652

PATIENT
  Age: 52 Year
  Sex: Female

DRUGS (3)
  1. OESTRADIOL [Suspect]
     Dosage: 2 MG
  2. CYPROTERONE ACETATE [Concomitant]
     Dosage: 1 MG
  3. SOY ISOFLAVONES [Concomitant]

REACTIONS (6)
  - ENDOMETRIAL HYPERTROPHY [None]
  - HOT FLUSH [None]
  - MENOPAUSAL SYMPTOMS [None]
  - OVARIAN ENLARGEMENT [None]
  - TUMOUR MARKER INCREASED [None]
  - UTERINE LEIOMYOMA [None]
